FAERS Safety Report 6536178-3 (Version None)
Quarter: 2010Q1

REPORT INFORMATION
  Report Type: 
  Country: None (occurrence: None)
  Receive Date: 20100113
  Receipt Date: 20091026
  Transmission Date: 20100710
  Serious: No
  Sender: FDA-Public Use
  Company Number: US-ALLERGAN-0914819US

PATIENT
  Sex: Female

DRUGS (3)
  1. LATISSE [Suspect]
     Indication: HYPOTRICHOSIS
     Dosage: 1 GTT, UNK
     Route: 061
     Dates: start: 20090101
  2. LATISSE [Suspect]
     Indication: HAIR GROWTH ABNORMAL
     Dosage: 1 GTT, QHS
     Route: 061
     Dates: start: 20090901
  3. MASCARA [Concomitant]
     Dosage: UNK

REACTIONS (4)
  - BURNING SENSATION [None]
  - DRUG ADMINISTERED AT INAPPROPRIATE SITE [None]
  - RASH [None]
  - SKIN BURNING SENSATION [None]
